FAERS Safety Report 19729177 (Version 1)
Quarter: 2021Q3

REPORT INFORMATION
  Report Type: Spontaneous
  Country: AU (occurrence: AU)
  Receive Date: 20210820
  Receipt Date: 20210820
  Transmission Date: 20211014
  Serious: No
  Sender: FDA-Public Use
  Company Number: AU-PFIZER INC-202100924823

PATIENT
  Age: 9 Decade
  Sex: Male

DRUGS (1)
  1. GENOTROPIN GOQUICK [Suspect]
     Active Substance: SOMATROPIN
     Dosage: 3.0 MG, 1X/DAY

REACTIONS (2)
  - Wrong dose [Unknown]
  - Device use error [Unknown]
